FAERS Safety Report 13064208 (Version 2)
Quarter: 2017Q1

REPORT INFORMATION
  Report Type: Spontaneous
  Country: DE (occurrence: DE)
  Receive Date: 20161227
  Receipt Date: 20170110
  Transmission Date: 20170428
  Serious: Yes (Hospitalization, Other)
  Sender: FDA-Public Use
  Company Number: DE-009507513-1612DEU010965

PATIENT
  Sex: Female

DRUGS (7)
  1. PANTOZOL [Concomitant]
     Active Substance: PANTOPRAZOLE SODIUM
     Dosage: 1X1 DAILY
  2. SIMVASTATIN. [Concomitant]
     Active Substance: SIMVASTATIN
     Dosage: 1X1 DAILY
     Route: 048
  3. KEYTRUDA [Suspect]
     Active Substance: PEMBROLIZUMAB
     Indication: METASTATIC MALIGNANT MELANOMA
     Dosage: UNK
     Dates: start: 20160628
  4. HUMALOG [Concomitant]
     Active Substance: INSULIN LISPRO
     Dosage: ACCORDING TO VALUES
  5. ASS 100 [Concomitant]
     Active Substance: ASPIRIN
     Indication: CEREBROVASCULAR ACCIDENT
     Dosage: 1C1 DAILY
  6. RAMIPRIL. [Concomitant]
     Active Substance: RAMIPRIL
     Indication: HYPERTENSION
     Dosage: 1X1 DAILY
  7. LANTUS [Concomitant]
     Active Substance: INSULIN GLARGINE
     Dosage: 1X 4 IE

REACTIONS (17)
  - Diabetes mellitus inadequate control [Unknown]
  - Diarrhoea [Unknown]
  - Vitamin D deficiency [Unknown]
  - Tachycardia [Unknown]
  - Hyperthyroidism [Unknown]
  - Hypothyroidism [Unknown]
  - General physical health deterioration [Unknown]
  - Hyponatraemia [Unknown]
  - Neutropenia [Unknown]
  - Hypocalcaemia [Unknown]
  - Anaemia [Unknown]
  - Hypomagnesaemia [Unknown]
  - Urinary tract infection [Unknown]
  - Thyroiditis [Recovered/Resolved]
  - Vomiting [Unknown]
  - Nausea [Unknown]
  - Hypoalbuminaemia [Unknown]

NARRATIVE: CASE EVENT DATE: 201610
